FAERS Safety Report 9257801 (Version 1)
Quarter: 2013Q2

REPORT INFORMATION
  Report Type: Spontaneous
  Country: US (occurrence: US)
  Receive Date: 20130426
  Receipt Date: 20130426
  Transmission Date: 20140414
  Serious: Yes (Other)
  Sender: FDA-Public Use
  Company Number: US-JNJFOC-20130414794

PATIENT
  Sex: Female

DRUGS (4)
  1. ORTHO EVRA [Suspect]
     Indication: CONTRACEPTION
     Dosage: ON DAY 3
     Route: 062
  2. ORTHO-NOVUM 1/35 [Suspect]
     Indication: CONTRACEPTION
     Dosage: 35 MCG OF ETHINYL ESTRADIOL AND 1 MG OF NORETHINDRONE??ON DAY 1
     Route: 048
  3. LOPINAVIR [Suspect]
     Indication: HIV INFECTION
     Route: 065
  4. RITONAVIR [Suspect]
     Indication: HIV INFECTION
     Route: 065

REACTIONS (1)
  - Pain [Unknown]
